FAERS Safety Report 18589314 (Version 2)
Quarter: 2020Q4

REPORT INFORMATION
  Report Type: Report from Study
  Country: EG (occurrence: EG)
  Receive Date: 20201208
  Receipt Date: 20201223
  Transmission Date: 20210114
  Serious: Yes (Death, Hospitalization, Other)
  Sender: FDA-Public Use
  Company Number: EG-REGENERON PHARMACEUTICALS, INC.-2020-92549

PATIENT

DRUGS (3)
  1. EYLEA [Suspect]
     Active Substance: AFLIBERCEPT
     Indication: EYE HAEMORRHAGE
     Dosage: UNK
     Route: 031
     Dates: start: 20191001, end: 20200520
  2. EYLEA [Suspect]
     Active Substance: AFLIBERCEPT
     Indication: CATARACT
     Dosage: 1 DF, ONCE, PATIENT TOOK 1 INJECTION IN LEFT EYE
     Route: 031
     Dates: start: 20191001, end: 20191001
  3. INSULIN [Concomitant]
     Active Substance: INSULIN NOS
     Indication: DIABETES MELLITUS
     Dosage: 50 U, BID, AT MORNING AND AT NIGHT
     Dates: end: 20200520

REACTIONS (5)
  - Death [Fatal]
  - Product use in unapproved indication [Unknown]
  - Hospitalisation [Unknown]
  - Cardiac dysfunction [Unknown]
  - Off label use [Unknown]

NARRATIVE: CASE EVENT DATE: 20200520
